FAERS Safety Report 7009002-2 (Version None)
Quarter: 2010Q3

REPORT INFORMATION
  Report Type: 
  Country: None (occurrence: None)
  Receive Date: 20100923
  Receipt Date: 20100915
  Transmission Date: 20110219
  Serious: Yes (Life-Threatening)
  Sender: FDA-Public Use
  Company Number: US-BAYER-201033890NA

PATIENT
  Sex: Female

DRUGS (1)
  1. MIRENA [Suspect]
     Indication: CONTRACEPTION
     Route: 015
     Dates: start: 20070101, end: 20100913

REACTIONS (9)
  - AMENORRHOEA [None]
  - ARTHRALGIA [None]
  - BREAST TENDERNESS [None]
  - CHEST PAIN [None]
  - FATIGUE [None]
  - MOOD SWINGS [None]
  - PELVIC PAIN [None]
  - SUICIDAL IDEATION [None]
  - WEIGHT INCREASED [None]
